FAERS Safety Report 5805304-3 (Version None)
Quarter: 2008Q3

REPORT INFORMATION
  Report Type: 
  Country: None (occurrence: None)
  Receive Date: 20080708
  Receipt Date: 20080630
  Transmission Date: 20090109
  Serious: Yes (Hospitalization)
  Sender: FDA-Public Use
  Company Number: 163-21880-08051426

PATIENT
  Age: 82 Year
  Sex: Male

DRUGS (1)
  1. REVLIMID [Suspect]
     Indication: MULTIPLE MYELOMA
     Dosage: 25 MG, QD, 3 WEEKS ON, 1 WEEK OFF, ORAL
     Route: 048
     Dates: start: 20071213, end: 20080501

REACTIONS (8)
  - CYSTITIS [None]
  - FATIGUE [None]
  - JAUNDICE [None]
  - KIDNEY INFECTION [None]
  - PLATELET COUNT DECREASED [None]
  - PNEUMONIA [None]
  - PRURITUS [None]
  - SYNCOPE [None]
